FAERS Safety Report 9893059 (Version 3)
Quarter: 2014Q1

REPORT INFORMATION
  Report Type: Report from Study
  Country: PL (occurrence: PL)
  Receive Date: 20140213
  Receipt Date: 20140305
  Transmission Date: 20141002
  Serious: Yes (Hospitalization)
  Sender: FDA-Public Use
  Company Number: PL-AMGEN-POLCT2014010389

PATIENT
  Age: 53 Year
  Sex: Female

DRUGS (9)
  1. ETANERCEPT [Suspect]
     Indication: RHEUMATOID ARTHRITIS
     Dosage: 50 MG, QWK, MOST RECENT DOSE PRIOR TO SAE ON 22/JAN/2014 (50 MG,1 IN 1 WK)
     Route: 058
     Dates: start: 201201
  2. SIMVASTATIN [Concomitant]
     Indication: HYPERLIPIDAEMIA
     Dosage: 20 MG,QD
     Route: 048
     Dates: start: 2001
  3. METHOTREXATE [Concomitant]
     Indication: RHEUMATOID ARTHRITIS
     Dosage: 20 MG,1 IN 1 WK
     Route: 048
     Dates: start: 20100624
  4. FOLIC ACID [Concomitant]
     Dosage: 15 MG,1 IN 1 WK
     Route: 048
     Dates: start: 20090717
  5. METHYLPREDNISOLON                  /00049601/ [Concomitant]
     Indication: RHEUMATOID ARTHRITIS
     Dosage: 6 MG, QD
     Route: 048
     Dates: start: 20111021
  6. OMEPRAZOL                          /00661201/ [Concomitant]
     Dosage: 20 MG, QD
     Route: 048
     Dates: start: 20111021
  7. NIMESULIDUM [Concomitant]
     Indication: RHEUMATOID ARTHRITIS
     Dosage: 100 MG, 2 IN 1 D
     Route: 048
     Dates: start: 20111021
  8. CIPROFLOXACINUM [Concomitant]
     Indication: CALCULUS URINARY
     Dosage: 500 MG, 2 IN 1 D
     Route: 048
     Dates: start: 20130430, end: 20130504
  9. DICLOFENAC SODIUM [Concomitant]
     Indication: CALCULUS URINARY
     Dosage: 50 MG, 2X/DAY
     Route: 050
     Dates: start: 20130430

REACTIONS (1)
  - Pyrexia [Recovered/Resolved]
